FAERS Safety Report 23143574 (Version 1)
Quarter: 2023Q4

REPORT INFORMATION
  Report Type: Spontaneous
  Country: FR (occurrence: FR)
  Receive Date: 20231103
  Receipt Date: 20231103
  Transmission Date: 20240110
  Serious: Yes (Death, Other)
  Sender: FDA-Public Use
  Company Number: FR-AMGEN-FRASP2023190384

PATIENT
  Age: 46 Year
  Sex: Female

DRUGS (3)
  1. FILGRASTIM [Suspect]
     Active Substance: FILGRASTIM
     Indication: Cyclic neutropenia
     Dosage: UNK, 2 TIMES/WK
     Route: 065
  2. FLUOROURACIL [Concomitant]
     Active Substance: FLUOROURACIL
  3. MITOMYCIN [Concomitant]
     Active Substance: MITOMYCIN

REACTIONS (2)
  - Pulmonary embolism [Fatal]
  - Pulmonary hypertension [Unknown]
